FAERS Safety Report 21405825 (Version 2)
Quarter: 2022Q4

REPORT INFORMATION
  Report Type: Other
  Country: US (occurrence: None)
  Receive Date: 20221004
  Receipt Date: 20221016
  Transmission Date: 20230112
  Serious: Yes (Hospitalization)
  Sender: FDA-Public Use
  Company Number: US-ROCHE-3188449

PATIENT
  Age: 78 Year
  Sex: Male

DRUGS (3)
  1. ACTEMRA [Suspect]
     Active Substance: TOCILIZUMAB
     Indication: Rheumatoid arthritis
     Dosage: INJECT 0.9ML SUBCUTANEOUSLY EVERY WEEK (HOLD FOR ILLNESS OR INFECTION)
     Route: 058
  2. ACTEMRA [Suspect]
     Active Substance: TOCILIZUMAB
  3. ACTEMRA [Suspect]
     Active Substance: TOCILIZUMAB

REACTIONS (3)
  - Wrong technique in product usage process [Unknown]
  - Sepsis [Unknown]
  - Illness [Unknown]

NARRATIVE: CASE EVENT DATE: 20220919
